FAERS Safety Report 5550376-7 (Version None)
Quarter: 2007Q4

REPORT INFORMATION
  Report Type: 
  Country: None (occurrence: None)
  Receive Date: 20071210
  Receipt Date: 20071210
  Transmission Date: 20080405
  Serious: Yes (Death)
  Sender: FDA-Public Use
  Company Number: 2007BI014406

PATIENT
  Age: 66 Year
  Sex: Female

DRUGS (3)
  1. ZEVALIN [Suspect]
     Indication: MANTLE CELL LYMPHOMA RECURRENT
     Dosage: 0.3 MCI/KG; 1X; IV
     Route: 042
     Dates: start: 20050729, end: 20050729
  2. RITUXIMAB [Concomitant]
  3. FLUDARA [Concomitant]

REACTIONS (3)
  - BONE MARROW TOXICITY [None]
  - HAEMORRHAGE INTRACRANIAL [None]
  - THROMBOCYTOPENIA [None]
